FAERS Safety Report 8802206 (Version 2)
Quarter: 2015Q1

REPORT INFORMATION
  Report Type: Report from Study
  Country: US (occurrence: US)
  Receive Date: 20120921
  Receipt Date: 20150302
  Transmission Date: 20150721
  Serious: Yes (Death)
  Sender: FDA-Public Use
  Company Number: US-ROCHE-1097680

PATIENT
  Age: 49 Year
  Sex: Female

DRUGS (39)
  1. AVASTIN [Suspect]
     Active Substance: BEVACIZUMAB
     Route: 042
  2. AVASTIN [Suspect]
     Active Substance: BEVACIZUMAB
     Dosage: 31/MAY/2006
     Route: 042
  3. AVASTIN [Suspect]
     Active Substance: BEVACIZUMAB
     Dosage: 04/MAY/2005, 18/MAY/2005
     Route: 042
  4. OXALIPLATIN. [Concomitant]
     Active Substance: OXALIPLATIN
     Route: 065
  5. 5-FLUOROURACIL [Concomitant]
     Active Substance: FLUOROURACIL
     Route: 065
  6. 5-FLUOROURACIL [Concomitant]
     Active Substance: FLUOROURACIL
     Route: 065
  7. 5-FLUOROURACIL [Concomitant]
     Active Substance: FLUOROURACIL
     Route: 065
  8. AVASTIN [Suspect]
     Active Substance: BEVACIZUMAB
     Route: 042
  9. LEUCOVORIN [Concomitant]
     Active Substance: LEUCOVORIN
     Route: 042
  10. 5-FLUOROURACIL [Concomitant]
     Active Substance: FLUOROURACIL
     Route: 065
  11. ATIVAN [Concomitant]
     Active Substance: LORAZEPAM
     Route: 042
  12. ATROPINE [Concomitant]
     Active Substance: ATROPINE
     Route: 065
  13. CAMPTOSAR [Concomitant]
     Active Substance: IRINOTECAN HYDROCHLORIDE
     Route: 065
  14. MORPHINE [Concomitant]
     Active Substance: MORPHINE
     Route: 065
  15. AVASTIN [Suspect]
     Active Substance: BEVACIZUMAB
     Route: 042
  16. 5-FLUOROURACIL [Concomitant]
     Active Substance: FLUOROURACIL
     Route: 065
  17. 5-FLUOROURACIL [Concomitant]
     Active Substance: FLUOROURACIL
     Route: 065
  18. ALOXI [Concomitant]
     Active Substance: PALONOSETRON HYDROCHLORIDE
     Route: 065
  19. SOLU-MEDROL [Concomitant]
     Active Substance: METHYLPREDNISOLONE SODIUM SUCCINATE
     Route: 042
  20. LEUCOVORIN [Concomitant]
     Active Substance: LEUCOVORIN
     Route: 042
  21. ATROPINE [Concomitant]
     Active Substance: ATROPINE
     Route: 042
  22. CAMPTOSAR [Concomitant]
     Active Substance: IRINOTECAN HYDROCHLORIDE
     Route: 065
  23. AVASTIN [Suspect]
     Active Substance: BEVACIZUMAB
     Indication: COLON CANCER
     Dosage: 10/AUG/2005
     Route: 042
  24. AVASTIN [Suspect]
     Active Substance: BEVACIZUMAB
     Dosage: 03/NOV/2007
     Route: 042
  25. AVASTIN [Suspect]
     Active Substance: BEVACIZUMAB
     Dosage: 08/NOV/2006
     Route: 042
  26. LEUCOVORIN [Concomitant]
     Active Substance: LEUCOVORIN
     Route: 042
  27. 5-FLUOROURACIL [Concomitant]
     Active Substance: FLUOROURACIL
     Route: 065
  28. 5-FLUOROURACIL [Concomitant]
     Active Substance: FLUOROURACIL
     Route: 065
  29. ATIVAN [Concomitant]
     Active Substance: LORAZEPAM
     Route: 065
  30. AVASTIN [Suspect]
     Active Substance: BEVACIZUMAB
     Route: 042
  31. AVASTIN [Suspect]
     Active Substance: BEVACIZUMAB
     Dosage: 04/DEC/2005, 28/DEC/2005
     Route: 042
  32. AVASTIN [Suspect]
     Active Substance: BEVACIZUMAB
     Route: 042
  33. 5-FLUOROURACIL [Concomitant]
     Active Substance: FLUOROURACIL
     Route: 065
  34. 5-FLUOROURACIL [Concomitant]
     Active Substance: FLUOROURACIL
     Route: 065
  35. BENADRYL [Concomitant]
     Active Substance: DIPHENHYDRAMINE HYDROCHLORIDE
     Route: 042
  36. AVASTIN [Suspect]
     Active Substance: BEVACIZUMAB
     Dosage: 24/AUG/2005
     Route: 042
  37. AVASTIN [Suspect]
     Active Substance: BEVACIZUMAB
     Route: 042
  38. AVASTIN [Suspect]
     Active Substance: BEVACIZUMAB
     Route: 042
  39. OXALIPLATIN. [Concomitant]
     Active Substance: OXALIPLATIN
     Route: 065

REACTIONS (8)
  - Erythema [Recovered/Resolved]
  - Pruritus [Recovered/Resolved]
  - Dyspnoea [Recovered/Resolved]
  - Rash [Unknown]
  - Pain [Unknown]
  - Death [Fatal]
  - Palpitations [Unknown]
  - Chest discomfort [Recovered/Resolved]

NARRATIVE: CASE EVENT DATE: 20050518
